FAERS Safety Report 6539330-6 (Version None)
Quarter: 2010Q1

REPORT INFORMATION
  Report Type: 
  Country: None (occurrence: None)
  Receive Date: 20100115
  Receipt Date: 20100105
  Transmission Date: 20100710
  Serious: Yes (Other)
  Sender: FDA-Public Use
  Company Number: PHEH2006US08961

PATIENT
  Sex: Female
  Weight: 87.074 kg

DRUGS (46)
  1. AREDIA [Suspect]
     Dosage: 90 MG, QMO
     Dates: start: 19990923, end: 20020410
  2. AREDIA [Suspect]
     Dosage: 30 MG, QMO
     Route: 042
     Dates: start: 20020201
  3. ZOMETA [Suspect]
     Dosage: 4 MG, QMO
     Dates: start: 20020508, end: 20041013
  4. VINCRISTINE [Concomitant]
     Indication: MULTIPLE MYELOMA
     Dates: start: 19990101, end: 20000101
  5. ADRIAMYCIN PFS [Concomitant]
     Dosage: UNK, UNK
     Route: 042
     Dates: start: 19990101, end: 20000101
  6. DEXAMETHASONE [Concomitant]
     Indication: MULTIPLE MYELOMA
     Dosage: UNK, UNK
     Route: 042
     Dates: start: 19990101, end: 20000101
  7. CYTOXAN [Concomitant]
     Indication: MULTIPLE MYELOMA
     Dosage: 4.5 GM/M2, UNK
     Route: 042
     Dates: start: 20000301, end: 20000401
  8. PROCRIT [Concomitant]
     Indication: ANAEMIA
     Dosage: 40000 U, PRN
  9. MELPHALAN HYDROCHLORIDE [Concomitant]
     Dosage: 200 MG/M2, UNK
  10. ACYCLOVIR [Concomitant]
     Dosage: 400 MG, BID
     Route: 048
  11. FOLIC ACID [Concomitant]
     Dosage: 2 MG, QD
     Route: 048
  12. PRILOSEC [Concomitant]
     Dosage: 20 MG, BID
     Route: 048
  13. OXYCODONE [Concomitant]
     Indication: PAIN
     Dosage: 5MG Q6H PRN
     Route: 048
  14. NEPHROCAPS [Concomitant]
     Dosage: 1 GEL CAP QD
     Route: 048
  15. NIFEREX [Concomitant]
     Dosage: 150 MG, QD
     Route: 048
  16. XANAX [Concomitant]
     Indication: DEPRESSION
     Dosage: 0.5MG Q8H PRN
     Route: 048
  17. PERCOCET [Concomitant]
     Indication: PAIN
     Dosage: 1 TABLET PO
  18. PENICILLIN ^GRUNENTHAL^ [Concomitant]
  19. CEPHALOSPORINES [Concomitant]
  20. CARBAPENEMS [Concomitant]
  21. AZTREONAM [Concomitant]
  22. FAMVIR                                  /UNK/ [Concomitant]
     Dosage: UNK
     Dates: start: 20000901
  23. NEUPOGEN [Concomitant]
     Dosage: 300 MCG, UNK
     Route: 058
  24. FORTAZ [Concomitant]
  25. TUMS [Concomitant]
  26. NIFEREX (POLYSACCHARIDE-IRON COMPLEX) [Concomitant]
     Dosage: 150 MG, BID
  27. LEVAQUIN [Concomitant]
     Dosage: 250 MG, QOD
  28. DURAGESIC-100 [Concomitant]
  29. DECADRON                                /CAN/ [Concomitant]
     Dosage: 4 MG, Q6H
  30. COLACE [Concomitant]
     Dosage: 100 MG, QD
  31. CHEMOTHERAPEUTICS NOS [Concomitant]
     Dosage: UNK
     Dates: start: 19990101
  32. EPOGEN [Concomitant]
  33. CIPROFLOXACIN [Concomitant]
     Dosage: 750 MG, Q12H
     Route: 048
  34. RESTORIL [Concomitant]
     Indication: INSOMNIA
     Dosage: 15 MG, QHS
  35. VITAMIN B-12 [Concomitant]
     Dosage: 1000 UG, QW
     Route: 048
  36. OVRAL [Concomitant]
     Dosage: 1 TABLET DAILY
     Route: 048
  37. COMPAZINE [Concomitant]
     Indication: NAUSEA
     Dosage: 10 MG, Q4H PRN
     Route: 048
  38. COMPAZINE [Concomitant]
     Indication: VOMITING
  39. DIFLUCAN [Concomitant]
     Dosage: 400 MG, QD
     Route: 048
  40. LIDOCAINE [Concomitant]
     Dosage: 1 %, UNK
     Route: 058
  41. MULTI-VITAMINS [Concomitant]
  42. ZITHROMAX [Concomitant]
     Dosage: 250 MG
  43. CLARITIN-D [Concomitant]
     Dosage: UNK
  44. FAMVIR                                  /UNK/ [Concomitant]
     Dosage: 250 MG
  45. MYCELEX [Concomitant]
  46. TYLENOL (CAPLET) [Concomitant]

REACTIONS (66)
  - ABSCESS [None]
  - ACUTE SINUSITIS [None]
  - ALOPECIA [None]
  - ANAEMIA [None]
  - ANXIETY [None]
  - ARTHRALGIA [None]
  - BLOOD CALCIUM DECREASED [None]
  - BONE CYST [None]
  - BONE DISORDER [None]
  - BONE LESION [None]
  - BONE PAIN [None]
  - BRONCHITIS [None]
  - CATHETER REMOVAL [None]
  - CENTRAL VENOUS CATHETERISATION [None]
  - COUGH [None]
  - DISEASE PROGRESSION [None]
  - ELECTROCARDIOGRAM QT PROLONGED [None]
  - GASTROINTESTINAL DISORDER [None]
  - GINGIVAL BLEEDING [None]
  - GINGIVAL EROSION [None]
  - GINGIVAL HYPERTROPHY [None]
  - GINGIVAL PAIN [None]
  - GINGIVAL SWELLING [None]
  - GINGIVITIS [None]
  - HEADACHE [None]
  - HERPES ZOSTER [None]
  - HOT FLUSH [None]
  - HYPERCHOLESTEROLAEMIA [None]
  - HYPERKALAEMIA [None]
  - HYPERNATRAEMIA [None]
  - IMPAIRED HEALING [None]
  - INFECTION [None]
  - INFLUENZA LIKE ILLNESS [None]
  - INJURY [None]
  - MASTICATION DISORDER [None]
  - MOUTH HAEMORRHAGE [None]
  - MUSCULOSKELETAL CHEST PAIN [None]
  - MYALGIA [None]
  - NEOPLASM MALIGNANT [None]
  - ORAL DISCOMFORT [None]
  - ORAL DISORDER [None]
  - ORAL SURGERY [None]
  - OSTEONECROSIS [None]
  - PAIN [None]
  - PAIN IN JAW [None]
  - PHARYNGITIS [None]
  - PLASMACYTOMA [None]
  - PYREXIA [None]
  - RETINAL INFARCTION [None]
  - SINUS TACHYCARDIA [None]
  - SOFT TISSUE INFECTION [None]
  - SOFT TISSUE INFLAMMATION [None]
  - SPLENOMEGALY [None]
  - STEM CELL TRANSPLANT [None]
  - STOMATITIS [None]
  - SYNOVIAL CYST [None]
  - TEMPOROMANDIBULAR JOINT SYNDROME [None]
  - TONGUE INJURY [None]
  - TOOTH DISORDER [None]
  - TOOTH EXTRACTION [None]
  - TOOTH FRACTURE [None]
  - TRANSFUSION [None]
  - VAGINAL HAEMORRHAGE [None]
  - VISUAL IMPAIRMENT [None]
  - WOUND COMPLICATION [None]
  - WOUND SECRETION [None]
